FAERS Safety Report 23224760 (Version 1)
Quarter: 2023Q4

REPORT INFORMATION
  Report Type: Spontaneous
  Country: JP (occurrence: JP)
  Receive Date: 20231124
  Receipt Date: 20231124
  Transmission Date: 20240110
  Serious: Yes (Other)
  Sender: FDA-Public Use
  Company Number: JP-TAIHO-2023-008255

PATIENT
  Age: 8 Decade
  Sex: Male

DRUGS (1)
  1. ABRAXANE [Suspect]
     Active Substance: PACLITAXEL
     Indication: Pancreatic carcinoma
     Dosage: NI, WITH SUSPENSION
     Route: 041
     Dates: start: 20230101, end: 20231109

REACTIONS (2)
  - Asthenia [Unknown]
  - Macular oedema [Recovered/Resolved]

NARRATIVE: CASE EVENT DATE: 20231109
